FAERS Safety Report 9467923 (Version 2)
Quarter: 2013Q3

REPORT INFORMATION
  Report Type: Spontaneous
  Country: IT (occurrence: IT)
  Receive Date: 20130821
  Receipt Date: 20130905
  Transmission Date: 20140515
  Serious: Yes (Hospitalization)
  Sender: FDA-Public Use
  Company Number: IT-PFIZER INC-2013240798

PATIENT
  Age: 82 Year
  Sex: Female

DRUGS (1)
  1. HALCION [Suspect]
     Indication: ANXIETY
     Dosage: 1 DF, 1X/DAY
     Route: 048
     Dates: start: 20130521, end: 20130621

REACTIONS (4)
  - Dizziness [Unknown]
  - Dyspnoea [Unknown]
  - Neck pain [Unknown]
  - Presyncope [Unknown]
